FAERS Safety Report 4570143-0 (Version None)
Quarter: 2005Q1

REPORT INFORMATION
  Report Type: 
  Country: None (occurrence: None)
  Receive Date: 20050131
  Receipt Date: 20050124
  Transmission Date: 20050727
  Serious: Yes (Other)
  Sender: FDA-Public Use
  Company Number: S04-USA-07918-01

PATIENT
  Age: 32 Year
  Sex: Female

DRUGS (1)
  1. LEXAPRO [Suspect]
     Indication: ANXIETY
     Dosage: 5 MG QD PO
     Route: 048
     Dates: start: 20041101, end: 20040101

REACTIONS (5)
  - BREAST ABSCESS [None]
  - FURUNCLE [None]
  - IMMUNE SYSTEM DISORDER [None]
  - SUBCUTANEOUS ABSCESS [None]
  - VAGINAL ABSCESS [None]
